FAERS Safety Report 23327301 (Version 1)
Quarter: 2023Q4

REPORT INFORMATION
  Report Type: Spontaneous
  Country: GB (occurrence: None)
  Receive Date: 20231221
  Receipt Date: 20231221
  Transmission Date: 20240110
  Serious: Yes (Other)
  Sender: FDA-Public Use
  Company Number: 2023A283256

PATIENT
  Age: 72 Year
  Sex: Female
  Weight: 79 kg

DRUGS (7)
  1. DAPAGLIFLOZIN [Suspect]
     Active Substance: DAPAGLIFLOZIN
     Indication: Insulin-requiring type 2 diabetes mellitus
     Dosage: 10, IN MORNING
     Route: 048
     Dates: start: 20231118, end: 20231204
  2. ATORVASTATIN [Concomitant]
     Active Substance: ATORVASTATIN
  3. BECLOMETHASONE DIPROPIONATE\FORMOTEROL FUMARATE [Concomitant]
     Active Substance: BECLOMETHASONE DIPROPIONATE\FORMOTEROL FUMARATE
     Indication: Asthma
  4. LISINOPRIL [Concomitant]
     Active Substance: LISINOPRIL
  5. NOVORAPID [Concomitant]
     Active Substance: INSULIN ASPART
     Indication: Insulin-requiring type 2 diabetes mellitus
  6. OMEPRAZOLE [Concomitant]
     Active Substance: OMEPRAZOLE
  7. TOUJEO [Concomitant]
     Active Substance: INSULIN GLARGINE
     Indication: Insulin-requiring type 2 diabetes mellitus

REACTIONS (4)
  - Urinary incontinence [Not Recovered/Not Resolved]
  - Nocturia [Unknown]
  - Pollakiuria [Not Recovered/Not Resolved]
  - Back pain [Unknown]

NARRATIVE: CASE EVENT DATE: 20231122
